FAERS Safety Report 8407309-5 (Version None)
Quarter: 2012Q2

REPORT INFORMATION
  Report Type: 
  Country: None (occurrence: None)
  Receive Date: 20120604
  Receipt Date: 20120528
  Transmission Date: 20120825
  Serious: Yes (Other)
  Sender: FDA-Public Use
  Company Number: GB-PFIZER INC-2012127799

PATIENT
  Sex: Female

DRUGS (2)
  1. DOXORUBICIN HCL [Suspect]
     Dosage: UNK
     Route: 065
  2. TRABECTEDIN [Suspect]
     Indication: SARCOMA
     Route: 042

REACTIONS (1)
  - PERICARDITIS [None]
